FAERS Safety Report 8999486 (Version 2)
Quarter: 2015Q1

REPORT INFORMATION
  Report Type: Spontaneous
  Country: JP (occurrence: JP)
  Receive Date: 20130103
  Receipt Date: 20150304
  Transmission Date: 20150721
  Serious: Yes (Death)
  Sender: FDA-Public Use
  Company Number: JP-GLAXOSMITHKLINE-B0855603A

PATIENT
  Sex: Male

DRUGS (2)
  1. LEXIN [Concomitant]
     Active Substance: CEPHALEXIN
     Route: 048
  2. LAMOTRIGINE. [Suspect]
     Active Substance: LAMOTRIGINE
     Route: 048

REACTIONS (1)
  - Rash [Fatal]

NARRATIVE: CASE EVENT DATE: 20121021
